FAERS Safety Report 20728612 (Version 1)
Quarter: 2022Q2

REPORT INFORMATION
  Report Type: Spontaneous
  Country: US (occurrence: US)
  Receive Date: 20220420
  Receipt Date: 20220420
  Transmission Date: 20220721
  Serious: Yes (Other)
  Sender: FDA-Public Use
  Company Number: US-CIPLA LTD.-2022US02456

PATIENT

DRUGS (2)
  1. EPIRUBICIN [Suspect]
     Active Substance: EPIRUBICIN
     Indication: Neurofibrosarcoma
     Dosage: 60 MILLIGRAM/SQ. METER, UNK
  2. IFOSFAMIDE [Suspect]
     Active Substance: IFOSFAMIDE
     Indication: Neurofibrosarcoma
     Dosage: 7.5-10 G/M2, PER CYCLE, UNK

REACTIONS (3)
  - Foetal growth restriction [Unknown]
  - Premature delivery [Unknown]
  - Exposure during pregnancy [Unknown]
